FAERS Safety Report 16286547 (Version 7)
Quarter: 2019Q4

REPORT INFORMATION
  Report Type: Spontaneous
  Country: US (occurrence: US)
  Receive Date: 20190508
  Receipt Date: 20191127
  Transmission Date: 20200122
  Serious: No
  Sender: FDA-Public Use
  Company Number: US-PFIZER INC-2018407011

PATIENT
  Age: 57 Year
  Sex: Female

DRUGS (6)
  1. METHOTREXATE. [Concomitant]
     Active Substance: METHOTREXATE
     Dosage: UNK
     Dates: start: 200802
  2. PLAQUENIL [Concomitant]
     Active Substance: HYDROXYCHLOROQUINE SULFATE
     Dosage: UNK
     Dates: start: 200802
  3. FOLIC [Concomitant]
     Active Substance: FOLIC ACID
     Dosage: UNK
     Dates: start: 200802
  4. CELEBREX [Suspect]
     Active Substance: CELECOXIB
     Indication: ANALGESIC THERAPY
     Dosage: 200 MG, 2X/DAY (TAKE ONE 2 TIMES DAILY FOR 12 MONTHS, 60 ONLY EACH MONTH. 3 MONTHS NEED TAKE 180)
     Dates: start: 200802
  5. CELEBREX [Suspect]
     Active Substance: CELECOXIB
     Dosage: 200 MG, 2X/DAY
  6. PREDNISONE. [Concomitant]
     Active Substance: PREDNISONE
     Dosage: UNK
     Dates: start: 200802

REACTIONS (3)
  - Gait inability [Recovered/Resolved]
  - Product dispensing error [Unknown]
  - Impaired driving ability [Recovered/Resolved]

NARRATIVE: CASE EVENT DATE: 200802
